FAERS Safety Report 9734857 (Version 2)
Quarter: 2014Q2

REPORT INFORMATION
  Report Type: Spontaneous
  Country: CH (occurrence: CH)
  Receive Date: 20131206
  Receipt Date: 20140509
  Transmission Date: 20141212
  Serious: Yes (Life-Threatening)
  Sender: FDA-Public Use
  Company Number: CH-JNJFOC-20131202965

PATIENT
  Age: 16 Year
  Sex: Male
  Weight: 42 kg

DRUGS (1)
  1. CONCERTA [Suspect]
     Indication: DISTURBANCE IN ATTENTION
     Route: 048

REACTIONS (2)
  - Congestive cardiomyopathy [Unknown]
  - Inborn error of metabolism [Unknown]
